FAERS Safety Report 6846104-5 (Version None)
Quarter: 2010Q3

REPORT INFORMATION
  Report Type: 
  Country: None (occurrence: None)
  Receive Date: 20100715
  Receipt Date: 20071024
  Transmission Date: 20110219
  Serious: No
  Sender: FDA-Public Use
  Company Number: US-PFIZER INC-2007074628

PATIENT
  Sex: Female
  Weight: 77.1 kg

DRUGS (16)
  1. CHANTIX [Suspect]
     Indication: SMOKING CESSATION THERAPY
     Route: 048
     Dates: start: 20070816
  2. SYNTHROID [Concomitant]
  3. ANTIHYPERTENSIVES [Concomitant]
  4. MULTI-VITAMINS [Concomitant]
  5. VITAMIN D [Concomitant]
  6. CALCIUM [Concomitant]
  7. ACETYLSALICYLIC ACID [Concomitant]
  8. CALCITRIOL [Concomitant]
  9. DIOVAN HCT [Concomitant]
     Dosage: 80/12.5,EVERY DAY
  10. LEVOTHROID [Concomitant]
  11. CLARITIN [Concomitant]
  12. ADVAIR DISKUS 100/50 [Concomitant]
  13. ALBUTEROL [Concomitant]
  14. VIVELLE [Concomitant]
  15. PROMETRIUM [Concomitant]
  16. FEXOFENADINE [Concomitant]

REACTIONS (5)
  - BLOOD CALCIUM INCREASED [None]
  - BLOOD CREATININE INCREASED [None]
  - DYSGEUSIA [None]
  - FEELING ABNORMAL [None]
  - RED BLOOD CELL SEDIMENTATION RATE INCREASED [None]
